FAERS Safety Report 24064319 (Version 1)
Quarter: 2024Q3

REPORT INFORMATION
  Report Type: Spontaneous
  Country: US (occurrence: None)
  Receive Date: 20240708
  Receipt Date: 20240708
  Transmission Date: 20241017
  Serious: Yes (Hospitalization)
  Sender: Public
  Company Number: None

PATIENT
  Age: 72 Year
  Sex: Male

DRUGS (1)
  1. ABIRATERONE [Suspect]
     Active Substance: ABIRATERONE
     Indication: Penile cancer
     Dosage: FREQUENCY : DAILY;?

REACTIONS (3)
  - Chest pain [None]
  - Paraesthesia [None]
  - Peripheral swelling [None]
